FAERS Safety Report 19181816 (Version 1)
Quarter: 2021Q2

REPORT INFORMATION
  Report Type: Spontaneous
  Country: LU (occurrence: LU)
  Receive Date: 20210426
  Receipt Date: 20210426
  Transmission Date: 20210717
  Serious: Yes (Other)
  Sender: FDA-Public Use
  Company Number: LU-TAKEDA-2021TUS024989

PATIENT
  Age: 27 Year
  Sex: Male

DRUGS (1)
  1. 489 (LISDEXAMFETAMINE DIMESYLATE) [Suspect]
     Active Substance: LISDEXAMFETAMINE DIMESYLATE
     Indication: ATTENTION DEFICIT HYPERACTIVITY DISORDER
     Dosage: 30 MILLIGRAM, QD
     Route: 065

REACTIONS (5)
  - Thirst [Unknown]
  - Fall [Unknown]
  - Decreased appetite [Unknown]
  - Nystagmus [Unknown]
  - Asthenia [Unknown]
